FAERS Safety Report 4821944-2 (Version None)
Quarter: 2005Q4

REPORT INFORMATION
  Report Type: 
  Country: None (occurrence: None)
  Receive Date: 20051103
  Receipt Date: 20051026
  Transmission Date: 20060501
  Serious: Yes (Other)
  Sender: FDA-Public Use
  Company Number: 2005-10-1489

PATIENT
  Age: 30 Year
  Sex: Male

DRUGS (2)
  1. TEMODAL [Suspect]
     Dosage: 75 MG/M^2
  2. RADIATION THERAPY [Concomitant]

REACTIONS (2)
  - OPTIC NEURITIS [None]
  - PAPILLITIS [None]
